FAERS Safety Report 9432469 (Version 2)
Quarter: 2013Q3

REPORT INFORMATION
  Report Type: Spontaneous
  Country: TR (occurrence: TR)
  Receive Date: 20130731
  Receipt Date: 20130808
  Transmission Date: 20140515
  Serious: Yes (Life-Threatening, Hospitalization, Other)
  Sender: FDA-Public Use
  Company Number: TR-RANBAXY-2013RR-71707

PATIENT
  Age: 29 Year
  Sex: Female

DRUGS (4)
  1. QUETIAPINE [Suspect]
     Indication: PRODUCT USED FOR UNKNOWN INDICATION
     Dosage: 9G, ESTIMATED DOSE
     Route: 048
  2. AMOXICILLIN [Suspect]
     Indication: PRODUCT USED FOR UNKNOWN INDICATION
     Dosage: 5 G, ESTIMATED DOSE
     Route: 048
  3. ESCITALOPRAM [Suspect]
     Indication: PRODUCT USED FOR UNKNOWN INDICATION
     Dosage: 280 MG, ESTIMATED DOSE
     Route: 048
  4. IBUPROFEN [Suspect]
     Dosage: 4 G, ESTIMATED DOSE
     Route: 048

REACTIONS (5)
  - Suicide attempt [Recovered/Resolved]
  - Intentional overdose [Recovered/Resolved]
  - Coma [Recovered/Resolved]
  - Hypotension [Recovered/Resolved]
  - Tachycardia [Recovered/Resolved]
